FAERS Safety Report 5601544-7 (Version None)
Quarter: 2008Q1

REPORT INFORMATION
  Report Type: 
  Country: None (occurrence: None)
  Receive Date: 20080124
  Receipt Date: 20080114
  Transmission Date: 20080703
  Serious: Yes (Hospitalization, Other)
  Sender: FDA-Public Use
  Company Number: FR-BRISTOL-MYERS SQUIBB COMPANY-14015747

PATIENT
  Age: 35 Year
  Sex: Female

DRUGS (15)
  1. ENDOXAN [Suspect]
     Indication: SYSTEMIC LUPUS ERYTHEMATOSUS
     Dosage: STARTED ON 20-NOV-07
     Route: 042
     Dates: start: 20071205, end: 20071205
  2. UROMITEXAN [Suspect]
     Indication: SYSTEMIC LUPUS ERYTHEMATOSUS
     Dosage: ALSO RECEIVED 600 MG ORALLY,FREQUENCY AS NEEDED ON 20-NOV-2007
     Route: 042
     Dates: start: 20071120, end: 20071120
  3. UROMITEXAN [Suspect]
     Dosage: ALSO STARTED ON 20-NOV-2007.
     Route: 048
     Dates: start: 20071205, end: 20071205
  4. ZOPHREN [Suspect]
     Indication: SYSTEMIC LUPUS ERYTHEMATOSUS
     Dosage: STARTED ON 20-NOV-2007.
     Route: 042
     Dates: start: 20071205, end: 20071205
  5. ZOPHREN [Suspect]
     Route: 048
     Dates: start: 20071205, end: 20071205
  6. TRIATEC [Concomitant]
  7. METHOTREXATE [Concomitant]
     Dates: end: 20071106
  8. CORTANCYL [Concomitant]
  9. INIPOMP [Concomitant]
  10. PREVISCAN [Concomitant]
     Dosage: 1 DOSAGE FOEM = 3/4 TABLET
  11. PARACETAMOL [Concomitant]
     Indication: PAIN
  12. DEROXAT [Concomitant]
     Dosage: 1 DOSAGE FORM = 1 TABLET
  13. CELLUVISC [Concomitant]
  14. XANAX [Concomitant]
     Dosage: ALSO GIVEN ON 05-DEC-2007
     Dates: start: 20071120, end: 20071120
  15. POLARAMINE [Concomitant]
     Dosage: ALSO TAKEN ON 05-DEC-2007
     Dates: start: 20071121, end: 20071121

REACTIONS (12)
  - CHILLS [None]
  - ERYTHEMA [None]
  - HYPERHIDROSIS [None]
  - HYPOTENSION [None]
  - LIP SWELLING [None]
  - PALATAL OEDEMA [None]
  - PYREXIA [None]
  - RASH [None]
  - RESPIRATORY DISTRESS [None]
  - TACHYCARDIA [None]
  - THIRST [None]
  - VOMITING [None]
